FAERS Safety Report 7349083-X (Version None)
Quarter: 2011Q1

REPORT INFORMATION
  Report Type: 
  Country: None (occurrence: None)
  Receive Date: 20110314
  Receipt Date: 20110309
  Transmission Date: 20110831
  Serious: Yes (Death)
  Sender: FDA-Public Use
  Company Number: US-ASTELLAS-2011US000986

PATIENT
  Sex: Female

DRUGS (1)
  1. PROGRAF [Suspect]
     Indication: LUNG TRANSPLANT
     Dosage: 0.5 MG, BID
     Route: 048
     Dates: end: 20110302

REACTIONS (2)
  - MYOCARDIAL INFARCTION [None]
  - OFF LABEL USE [None]
